FAERS Safety Report 9916721 (Version 2)
Quarter: 2014Q1

REPORT INFORMATION
  Report Type: Spontaneous
  Country: FR (occurrence: FR)
  Receive Date: 20140221
  Receipt Date: 20140311
  Transmission Date: 20141002
  Serious: Yes (Life-Threatening, Hospitalization, Other)
  Sender: FDA-Public Use
  Company Number: FR-PFIZER INC-2014046988

PATIENT
  Age: 92 Year
  Sex: Female

DRUGS (5)
  1. ZOLOFT [Suspect]
     Dosage: 50 MG, UNK
     Route: 048
  2. ZOLOFT [Suspect]
     Dosage: UNK
     Dates: end: 20140210
  3. LASILIX [Suspect]
     Dosage: 60 MG, UNK
     Route: 048
     Dates: start: 20140130
  4. LASILIX [Suspect]
     Dosage: 80 MG, SINGLE
     Route: 042
     Dates: start: 20140203, end: 20140203
  5. EBIXA [Concomitant]
     Dosage: UNK

REACTIONS (4)
  - Hyponatraemia [Recovered/Resolved]
  - Fall [Unknown]
  - Cardiac failure [Recovering/Resolving]
  - Oedema peripheral [Unknown]
